FAERS Safety Report 6977253-9 (Version None)
Quarter: 2010Q3

REPORT INFORMATION
  Report Type: 
  Country: None (occurrence: None)
  Receive Date: 20100910
  Receipt Date: 20100908
  Transmission Date: 20110219
  Serious: Yes (Hospitalization)
  Sender: FDA-Public Use
  Company Number: US-CEPHALON-2010004768

PATIENT
  Sex: Male
  Weight: 107 kg

DRUGS (4)
  1. TREANDA [Suspect]
     Indication: CHRONIC LYMPHOCYTIC LEUKAEMIA
     Route: 041
     Dates: start: 20100802, end: 20100803
  2. OFATUMUMAB [Suspect]
     Indication: CHRONIC LYMPHOCYTIC LEUKAEMIA RECURRENT
     Route: 042
     Dates: start: 20100726, end: 20100802
  3. HYDROCHLOROTHIAZIDE [Concomitant]
  4. MICARDIS [Concomitant]

REACTIONS (2)
  - FAILURE TO THRIVE [None]
  - HYPOTENSION [None]
